FAERS Safety Report 6042955-8 (Version None)
Quarter: 2009Q1

REPORT INFORMATION
  Report Type: 
  Country: None (occurrence: None)
  Receive Date: 20090119
  Receipt Date: 20081020
  Transmission Date: 20090719
  Serious: Yes (Other)
  Sender: FDA-Public Use
  Company Number: GB-ABBOTT-09P-167-0497963-00

PATIENT
  Age: 15 Month
  Sex: Female

DRUGS (17)
  1. ERYTHROMYCIN [Suspect]
     Indication: DRUG USE FOR UNKNOWN INDICATION
     Route: 065
  2. MICONAZOLE [Interacting]
     Indication: FUNGAL INFECTION
     Route: 048
     Dates: start: 20080919
  3. TACROLIMUS [Interacting]
     Indication: IMMUNOSUPPRESSION
     Route: 048
     Dates: start: 20080803
  4. ASPIRIN [Concomitant]
     Indication: ANTIPLATELET THERAPY
     Dates: start: 20080801
  5. GENTAMICIN [Concomitant]
     Indication: INFECTION
     Dates: start: 20080801
  6. PREDNISOLONE [Concomitant]
     Indication: IMMUNOSUPPRESSION
     Dates: start: 20080801
  7. CODEINE [Concomitant]
     Indication: GASTROINTESTINAL HYPERMOTILITY
     Dates: start: 20080801
  8. COLISTIN SULFATE [Concomitant]
     Indication: PROPHYLAXIS
     Dates: start: 20080801
  9. COTRIM [Concomitant]
     Indication: PROPHYLAXIS
     Dates: start: 20080801
  10. DIPYRIDAMOLE [Concomitant]
     Indication: ANTIPLATELET THERAPY
     Dates: start: 20080801
  11. AMPHOTERICIN B [Concomitant]
     Indication: PROPHYLAXIS
     Dates: start: 20080801
  12. MAGNESIUM GLYCEROPHOSPHATE [Concomitant]
     Indication: HYPOMAGNESAEMIA
     Dates: start: 20080801
  13. MYCOPHENOLATE MOFETIL [Concomitant]
     Indication: IMMUNOSUPPRESSION
     Dates: start: 20080801
  14. OMEPRAZOLE [Concomitant]
     Indication: DRUG USE FOR UNKNOWN INDICATION
     Dates: start: 20080801
  15. ACYCLOVIR SODIUM [Concomitant]
     Indication: EPSTEIN-BARR VIRUS INFECTION
     Dates: start: 20080801
  16. SODIUM BICARBONATE [Concomitant]
     Indication: DRUG USE FOR UNKNOWN INDICATION
     Dates: start: 20080801
  17. URSODIOL [Concomitant]
     Indication: DRUG USE FOR UNKNOWN INDICATION
     Dates: start: 20080801

REACTIONS (2)
  - DRUG INTERACTION [None]
  - DRUG LEVEL INCREASED [None]
